FAERS Safety Report 5556077-3 (Version None)
Quarter: 2007Q4

REPORT INFORMATION
  Report Type: 
  Country: None (occurrence: None)
  Receive Date: 20071213
  Receipt Date: 20071210
  Transmission Date: 20080405
  Serious: Yes (Hospitalization, Other)
  Sender: FDA-Public Use
  Company Number: US-PFIZER INC-2007032846

PATIENT
  Sex: Female
  Weight: 91.2 kg

DRUGS (10)
  1. CELEBREX [Suspect]
     Indication: ARTHRITIS
     Route: 048
  2. VIOXX [Suspect]
     Indication: ARTHRITIS
     Route: 048
     Dates: start: 20000409
  3. LASIX [Concomitant]
     Indication: OEDEMA PERIPHERAL
  4. LASIX [Concomitant]
     Indication: CARDIAC DISORDER
  5. LASIX [Concomitant]
     Indication: BLOOD POTASSIUM ABNORMAL
  6. LANOXIN [Concomitant]
     Indication: CARDIAC FAILURE CONGESTIVE
     Dates: start: 19970314
  7. ACETYLSALICYLIC ACID SRT [Concomitant]
     Dates: start: 20000501
  8. NAPROSYN [Concomitant]
     Indication: ARTHRALGIA
  9. NAPROSYN [Concomitant]
     Indication: BACK PAIN
  10. ZOLOFT [Concomitant]
     Indication: DEPRESSION
     Dates: start: 19981209

REACTIONS (5)
  - ANGINA UNSTABLE [None]
  - CARDIAC FAILURE CONGESTIVE [None]
  - CEREBROVASCULAR ACCIDENT [None]
  - CORONARY ARTERY DISEASE [None]
  - MYOCARDIAL INFARCTION [None]
